FAERS Safety Report 22131216 (Version 1)
Quarter: 2023Q1

REPORT INFORMATION
  Report Type: Spontaneous
  Country: US (occurrence: None)
  Receive Date: 20230322
  Receipt Date: 20230322
  Transmission Date: 20230417
  Serious: No
  Sender: FDA-Public Use
  Company Number: None

PATIENT
  Sex: 0

DRUGS (2)
  1. ZARXIO [Suspect]
     Active Substance: FILGRASTIM-SNDZ
  2. VENOFER [Suspect]
     Active Substance: IRON SUCROSE

REACTIONS (2)
  - Drug ineffective [None]
  - Laboratory test abnormal [None]

NARRATIVE: CASE EVENT DATE: 20230322
